FAERS Safety Report 8283386-X (Version None)
Quarter: 2012Q2

REPORT INFORMATION
  Report Type: 
  Country: None (occurrence: None)
  Receive Date: 20120413
  Receipt Date: 20120326
  Transmission Date: 20120825
  Serious: Yes (Hospitalization)
  Sender: FDA-Public Use
  Company Number: FR-MILLENNIUM PHARMACEUTICALS, INC.-2012-02271

PATIENT

DRUGS (7)
  1. CALCIPARINE [Suspect]
     Indication: PRODUCT USED FOR UNKNOWN INDICATION
     Dosage: UNK
     Route: 058
     Dates: start: 20120112
  2. DEXAMETHASONE [Suspect]
     Indication: MULTIPLE MYELOMA
     Dosage: 20 MG, UNK
     Route: 048
     Dates: start: 20120316
  3. BACTRIM [Concomitant]
     Dosage: UNK
     Route: 048
     Dates: start: 20120112
  4. ARANESP [Concomitant]
     Dosage: UNK
     Route: 058
     Dates: start: 20120112
  5. VELCADE [Suspect]
     Indication: MULTIPLE MYELOMA
     Dosage: 2.1 MG, UNK
     Route: 042
     Dates: start: 20120316
  6. NEXIUM [Concomitant]
     Dosage: 20 MG, UNK
     Route: 048
     Dates: start: 20120112
  7. ZELITREX                           /01269701/ [Concomitant]
     Dosage: UNK
     Route: 048
     Dates: start: 20120112

REACTIONS (1)
  - PHLEBITIS [None]
